FAERS Safety Report 6395568-2 (Version None)
Quarter: 2009Q4

REPORT INFORMATION
  Report Type: 
  Country: None (occurrence: None)
  Receive Date: 20091007
  Receipt Date: 20090925
  Transmission Date: 20100525
  Serious: Yes (Death, Hospitalization, Other)
  Sender: FDA-Public Use
  Company Number: 2009-01273

PATIENT
  Age: 76 Year
  Sex: Male
  Weight: 75.6 kg

DRUGS (2)
  1. VELCADE [Suspect]
     Indication: MULTIPLE MYELOMA
     Dosage: 1.3 MG/M2, INTRAVENOUS
     Route: 042
     Dates: start: 20090127, end: 20090206
  2. DOXIL [Suspect]
     Indication: MULTIPLE MYELOMA
     Dates: start: 20090101

REACTIONS (4)
  - ACUTE RESPIRATORY FAILURE [None]
  - DIZZINESS [None]
  - FALL [None]
  - TRAUMATIC INTRACRANIAL HAEMORRHAGE [None]
